FAERS Safety Report 8799879 (Version 1)
Quarter: 2012Q4

REPORT INFORMATION
  Report Type: Spontaneous
  Country: US (occurrence: None)
  Receive Date: 20120918
  Receipt Date: 20120918
  Transmission Date: 20130627
  Serious: No
  Sender: FDA-Public Use
  Company Number: None

PATIENT
  Age: 48 Year
  Sex: Male
  Weight: 84 kg

DRUGS (1)
  1. SILDENAFIL [Suspect]
     Route: 048
     Dates: start: 20120109, end: 20120619

REACTIONS (1)
  - Ejaculation failure [None]
